FAERS Safety Report 22923273 (Version 5)
Quarter: 2023Q4

REPORT INFORMATION
  Report Type: Report from Study
  Country: AR (occurrence: AR)
  Receive Date: 20230908
  Receipt Date: 20231117
  Transmission Date: 20240109
  Serious: Yes (Other)
  Sender: FDA-Public Use
  Company Number: AR-ABBVIE-4773050

PATIENT
  Age: 41 Year
  Sex: Female

DRUGS (18)
  1. UPADACITINIB [Suspect]
     Active Substance: UPADACITINIB
     Indication: Product used for unknown indication
     Dosage: DURATION TEXT: REASON FOR CHANGE OR STOP: ADVERSE EVENT
     Route: 048
     Dates: start: 20220505, end: 20230822
  2. UPADACITINIB [Suspect]
     Active Substance: UPADACITINIB
     Indication: Product used for unknown indication
     Dosage: 15 MILLIGRAM
     Route: 048
     Dates: start: 20220202, end: 20220428
  3. UPADACITINIB [Suspect]
     Active Substance: UPADACITINIB
     Indication: Product used for unknown indication
     Dosage: 15 MILLIGRAM
     Route: 048
     Dates: start: 20231024
  4. BETAMETHASONE SODIUM PHOSPHATE;DICLOFENAC POTASSIUM [Concomitant]
     Indication: Product used for unknown indication
     Dosage: DICLOFENAC POTASSIUM 75.00 MG, BETAMETHASONE SODIUM PHOSPHATE 2.63 M
     Route: 030
     Dates: start: 20220328, end: 20220330
  5. PREDNISONE [Concomitant]
     Active Substance: PREDNISONE
     Indication: Product used for unknown indication
     Dosage: FIRST ADMIN DATE : 2022
     Route: 058
     Dates: end: 20221004
  6. PREDNISONE [Concomitant]
     Active Substance: PREDNISONE
     Indication: Product used for unknown indication
     Route: 048
     Dates: start: 2019, end: 20220428
  7. PREDNISONE [Concomitant]
     Active Substance: PREDNISONE
     Indication: Product used for unknown indication
     Route: 048
     Dates: start: 20220505, end: 20220810
  8. NAPROXEN [Concomitant]
     Active Substance: NAPROXEN
     Indication: Product used for unknown indication
     Route: 048
     Dates: start: 2019, end: 20220428
  9. NAPROXEN [Concomitant]
     Active Substance: NAPROXEN
     Indication: Product used for unknown indication
     Route: 048
     Dates: start: 20220505, end: 20220930
  10. NAPROXEN [Concomitant]
     Active Substance: NAPROXEN
     Indication: Product used for unknown indication
     Dosage: TIME INTERVAL: AS NECESSARY: FREQUENCY TEXT: AS NEEDED
     Route: 048
     Dates: start: 20221001
  11. METHOTREXATE [Concomitant]
     Active Substance: METHOTREXATE
     Indication: Product used for unknown indication
     Dosage: FREQUENCY TEXT: WEEKLY?DURATION TEXT: STOPPED DUE TO PHYSICIAN DECISION
     Route: 065
     Dates: start: 2019, end: 20221004
  12. METHOTREXATE [Concomitant]
     Active Substance: METHOTREXATE
     Indication: Product used for unknown indication
     Route: 065
     Dates: start: 2006, end: 2019
  13. PREDNISOLONE [Concomitant]
     Active Substance: PREDNISOLONE
     Indication: Product used for unknown indication
     Dosage: TIME INTERVAL: 0.33333333 WEEKS
     Route: 048
     Dates: start: 20221001, end: 20230530
  14. PREDNISOLONE [Concomitant]
     Active Substance: PREDNISOLONE
     Indication: Product used for unknown indication
     Route: 048
     Dates: start: 20220811, end: 20220930
  15. INFLUENZA VIRUS VACCINE [Concomitant]
     Active Substance: INFLUENZA VIRUS VACCINE
     Indication: Product used for unknown indication
     Dosage: SEASONAL
     Route: 065
     Dates: start: 20220425
  16. ETINILESTRADIOL+LEVONORGESTREL [Concomitant]
     Indication: Prophylaxis
     Dosage: 1 TABLET
     Dates: start: 2013
  17. CYANOCOBALAMIN\FOLIC ACID\PYRIDOXINE HYDROCHLORIDE [Concomitant]
     Active Substance: CYANOCOBALAMIN\FOLIC ACID\PYRIDOXINE HYDROCHLORIDE
     Indication: Prophylaxis
     Dates: start: 2019, end: 20221004
  18. ALPRAZOLAM [Concomitant]
     Active Substance: ALPRAZOLAM
     Indication: Insomnia
     Dosage: 1 MILLIGRAM
     Dates: start: 2019

REACTIONS (16)
  - Cervix carcinoma stage 0 [Recovered/Resolved]
  - Anaemia [Recovered/Resolved]
  - Heavy menstrual bleeding [Recovered/Resolved]
  - Musculoskeletal chest pain [Recovered/Resolved]
  - Laryngitis [Recovered/Resolved]
  - Cervical dysplasia [Recovering/Resolving]
  - Acne [Recovered/Resolved]
  - Pruritus [Recovered/Resolved]
  - Chondritis [Recovered/Resolved]
  - Nasopharyngitis [Recovered/Resolved]
  - Muscle contracture [Recovered/Resolved]
  - Papilloma viral infection [Recovered/Resolved]
  - Blood creatine phosphokinase increased [Unknown]
  - Blood creatinine increased [Unknown]
  - C-reactive protein increased [Unknown]
  - White blood cell count abnormal [Unknown]

NARRATIVE: CASE EVENT DATE: 20220428
